FAERS Safety Report 6666593-9 (Version None)
Quarter: 2010Q2

REPORT INFORMATION
  Report Type: 
  Country: None (occurrence: None)
  Receive Date: 20100404
  Receipt Date: 20100121
  Transmission Date: 20101027
  Serious: No
  Sender: FDA-Public Use
  Company Number: US-ALLERGAN-1000777US

PATIENT
  Sex: Female

DRUGS (2)
  1. ZYMAR [Suspect]
     Indication: DRUG USE FOR UNKNOWN INDICATION
     Dosage: UNK
     Dates: start: 20100118, end: 20100121
  2. XALATAN [Concomitant]

REACTIONS (3)
  - DRY SKIN [None]
  - ERYTHEMA [None]
  - LACRIMATION INCREASED [None]
